FAERS Safety Report 25444649 (Version 3)
Quarter: 2025Q3

REPORT INFORMATION
  Report Type: Spontaneous
  Country: EU (occurrence: EU)
  Receive Date: 20250617
  Receipt Date: 20250703
  Transmission Date: 20251020
  Serious: Yes (Hospitalization, Other)
  Sender: AUROBINDO
  Company Number: EU-AUROBINDO-AUR-APL-2025-029409

PATIENT
  Age: 77 Year
  Sex: Female

DRUGS (4)
  1. AMOXICILLIN\CLAVULANIC ACID [Suspect]
     Active Substance: AMOXICILLIN\CLAVULANIC ACID
     Indication: Tooth extraction
     Route: 065
     Dates: start: 20240315
  2. AMOXICILLIN\CLAVULANIC ACID [Suspect]
     Active Substance: AMOXICILLIN\CLAVULANIC ACID
     Indication: Antibiotic therapy
  3. ETORICOXIB [Suspect]
     Active Substance: ETORICOXIB
     Indication: Tooth extraction
     Route: 065
     Dates: start: 20240315
  4. CLONIXIN [Suspect]
     Active Substance: CLONIXIN
     Indication: Tooth extraction
     Route: 065
     Dates: start: 20240315

REACTIONS (13)
  - Drug reaction with eosinophilia and systemic symptoms [Unknown]
  - Drug-induced liver injury [Unknown]
  - Acute kidney injury [Unknown]
  - Eosinophilia [Unknown]
  - Rash maculo-papular [Unknown]
  - Liver injury [Unknown]
  - Toxic skin eruption [Unknown]
  - Malaise [Unknown]
  - Feeling hot [Unknown]
  - Asthenia [Unknown]
  - Vomiting [Unknown]
  - Dehydration [Unknown]
  - Leukocytosis [Unknown]

NARRATIVE: CASE EVENT DATE: 20240318
